FAERS Safety Report 7379920-4 (Version None)
Quarter: 2011Q1

REPORT INFORMATION
  Report Type: 
  Country: None (occurrence: None)
  Receive Date: 20110324
  Receipt Date: 20110324
  Transmission Date: 20110831
  Serious: Yes (Death)
  Sender: FDA-Public Use
  Company Number: None

PATIENT
  Age: 71 Year
  Sex: Female
  Weight: 65 kg

DRUGS (1)
  1. TARCEVA [Suspect]
     Indication: LUNG NEOPLASM MALIGNANT
     Dosage: 100 MG QD PO
     Route: 048
     Dates: start: 20040304, end: 20110319

REACTIONS (6)
  - HYPOPHAGIA [None]
  - REFUSAL OF TREATMENT BY PATIENT [None]
  - FLUID INTAKE REDUCED [None]
  - HYPOAESTHESIA [None]
  - FALL [None]
  - HALLUCINATION, VISUAL [None]
